FAERS Safety Report 22794931 (Version 2)
Quarter: 2023Q4

REPORT INFORMATION
  Report Type: Spontaneous
  Country: US (occurrence: US)
  Receive Date: 20230807
  Receipt Date: 20231103
  Transmission Date: 20240109
  Serious: No
  Sender: FDA-Public Use
  Company Number: US-PFIZER INC-202300269232

PATIENT
  Age: 90 Year
  Sex: Female
  Weight: 62.132 kg

DRUGS (5)
  1. PREMARIN [Suspect]
     Active Substance: ESTROGENS, CONJUGATED
     Indication: Hormone replacement therapy
     Dosage: 0.625 MG
  2. PREMARIN [Suspect]
     Active Substance: ESTROGENS, CONJUGATED
     Indication: Bone disorder
  3. DIGOXIN [Concomitant]
     Active Substance: DIGOXIN
     Dosage: UNK
  4. OXYBUTYNIN [Concomitant]
     Active Substance: OXYBUTYNIN
     Dosage: UNK
  5. METOPROLOL [Concomitant]
     Active Substance: METOPROLOL
     Dosage: UNK

REACTIONS (1)
  - Urinary tract infection [Unknown]
